FAERS Safety Report 15053859 (Version 3)
Quarter: 2024Q1

REPORT INFORMATION
  Report Type: Spontaneous
  Country: US (occurrence: US)
  Receive Date: 20180622
  Receipt Date: 20240226
  Transmission Date: 20240410
  Serious: No
  Sender: FDA-Public Use
  Company Number: US-PFIZER INC-2017112646

PATIENT
  Age: 55 Year
  Sex: Female

DRUGS (3)
  1. METHOTREXATE SODIUM [Suspect]
     Active Substance: METHOTREXATE SODIUM
     Indication: Rheumatoid arthritis
     Dosage: 20 MG, WEEKLY
     Route: 058
  2. METHOTREXATE SODIUM [Suspect]
     Active Substance: METHOTREXATE SODIUM
     Dosage: UNK, WEEKLY (25 MG/CC LIQUID (2 CC VIALS) 0.8 CC SUB Q QWEEK)
     Route: 058
  3. XELJANZ XR [Suspect]
     Active Substance: TOFACITINIB CITRATE
     Indication: Rheumatoid arthritis
     Dosage: 11 MG TABLET 1 TAB ORALLY ONCE A DAY
     Route: 048

REACTIONS (3)
  - Condition aggravated [Unknown]
  - Pain [Unknown]
  - Drug ineffective [Unknown]
